FAERS Safety Report 22659898 (Version 1)
Quarter: 2023Q2

REPORT INFORMATION
  Report Type: Spontaneous
  Country: GB (occurrence: GB)
  Receive Date: 20230630
  Receipt Date: 20230630
  Transmission Date: 20230721
  Serious: Yes (Other)
  Sender: FDA-Public Use
  Company Number: None

PATIENT
  Age: 65 Year
  Sex: Female
  Weight: 91 kg

DRUGS (19)
  1. MONTELUKAST [Suspect]
     Active Substance: MONTELUKAST SODIUM
     Indication: Asthma
     Dosage: NIGHT
     Route: 065
     Dates: start: 20230320
  2. ALOGLIPTIN [Concomitant]
     Active Substance: ALOGLIPTIN
     Indication: Product used for unknown indication
     Dosage: 1 {DF}
     Route: 065
     Dates: start: 20230320
  3. ATORVASTATIN [Concomitant]
     Active Substance: ATORVASTATIN
     Indication: Blood cholesterol
     Dosage: NIGHT
     Route: 065
     Dates: start: 20230320
  4. BISOPROLOL [Concomitant]
     Active Substance: BISOPROLOL
     Indication: Product used for unknown indication
     Dosage: 1 {DF}
     Route: 065
     Dates: start: 20230320
  5. BRICANYL [Concomitant]
     Active Substance: TERBUTALINE SULFATE
     Indication: Dyspnoea
     Dosage: 1 {DF}
     Route: 055
     Dates: start: 20230220
  6. CANDESARTAN [Concomitant]
     Active Substance: CANDESARTAN
     Indication: Blood pressure measurement
     Dosage: 1 {DF}
     Route: 065
     Dates: start: 20230320
  7. CHLORAMPHENICOL [Concomitant]
     Active Substance: CHLORAMPHENICOL
     Indication: Product used for unknown indication
     Dosage: CAN BE USED EVERY 3-4 HOURS ON FIRST DAY; THEN ...
     Route: 065
     Dates: start: 20230607, end: 20230612
  8. CLOBETASOL PROPIONATE [Concomitant]
     Active Substance: CLOBETASOL PROPIONATE
     Indication: Product used for unknown indication
     Dosage: APPLY SPARINGLY TO THE AFFECTED AREA(S) ONCE A ...
     Route: 065
     Dates: start: 20230320
  9. DOXYCYCLINE [Concomitant]
     Active Substance: DOXYCYCLINE
     Indication: Product used for unknown indication
     Dosage: TAKE 2 ON THE FIRST DAY
     Route: 065
     Dates: start: 20230502, end: 20230516
  10. FUROSEMIDE [Concomitant]
     Active Substance: FUROSEMIDE
     Indication: Product used for unknown indication
     Dosage: MORNING.
     Route: 065
     Dates: start: 20230320
  11. GLICLAZIDE [Concomitant]
     Active Substance: GLICLAZIDE
     Indication: Product used for unknown indication
     Dosage: WITH MEALS.
     Route: 065
     Dates: start: 20230320
  12. OMEPRAZOLE [Concomitant]
     Active Substance: OMEPRAZOLE
     Indication: Product used for unknown indication
     Dosage: 1 {DF}
     Route: 065
     Dates: start: 20230320
  13. PREDNISOLONE [Concomitant]
     Active Substance: PREDNISOLONE
     Indication: Product used for unknown indication
     Dosage: MORNING
     Route: 065
     Dates: start: 20230502, end: 20230509
  14. SPIRONOLACTONE [Concomitant]
     Active Substance: SPIRONOLACTONE
     Indication: Product used for unknown indication
     Dosage: MORNING.
     Route: 065
     Dates: start: 20230320
  15. TEGRETOL [Concomitant]
     Active Substance: CARBAMAZEPINE
     Indication: Product used for unknown indication
     Dosage: 1 {DF}
     Route: 065
     Dates: start: 20230320
  16. TRELEGY ELLIPTA [Concomitant]
     Active Substance: FLUTICASONE FUROATE\UMECLIDINIUM BROMIDE\VILANTEROL TRIFENATATE
     Indication: Product used for unknown indication
     Dosage: 1 {DF}
     Route: 055
     Dates: start: 20230320
  17. WARFARIN SODIUM [Concomitant]
     Active Substance: WARFARIN SODIUM
     Indication: Product used for unknown indication
     Dosage: TAKE AS INSTRUCTED, ACCORDING TO THE INR RESULT
     Route: 065
     Dates: start: 20230320
  18. YALTORMIN SR [Concomitant]
     Indication: Product used for unknown indication
     Dosage: 4 {DF}
     Route: 065
     Dates: start: 20230320
  19. ZEROCREAM [Concomitant]
     Indication: Product used for unknown indication
     Dosage: APPLY TO THE AFFECTED AREA(S) LIBERALLY AND FRE...
     Route: 065
     Dates: start: 20221128

REACTIONS (1)
  - Hyponatraemia [Not Recovered/Not Resolved]
